FAERS Safety Report 8556690 (Version 3)
Quarter: 2013Q4

REPORT INFORMATION
  Report Type: Spontaneous
  Country: GB (occurrence: GB)
  Receive Date: 20120510
  Receipt Date: 20131010
  Transmission Date: 20140711
  Serious: Yes (Death, Hospitalization)
  Sender: FDA-Public Use
  Company Number: GB-ROCHE-1067255

PATIENT
  Age: 43 Year
  Sex: Male
  Weight: 68 kg

DRUGS (7)
  1. PEGASYS [Suspect]
     Indication: HEPATITIS C
     Route: 058
     Dates: start: 20120418, end: 20120421
  2. RIBAVIRIN [Suspect]
     Indication: HEPATITIS C
     Route: 048
     Dates: start: 20120418, end: 20120421
  3. TELAPREVIR [Suspect]
     Indication: HEPATITIS C
     Route: 048
     Dates: start: 20120418, end: 20120421
  4. BECOTIDE [Concomitant]
     Indication: ASTHMA
     Route: 045
     Dates: end: 20120421
  5. DIAZEPAM [Concomitant]
     Indication: ANXIETY
     Route: 048
     Dates: end: 20120421
  6. OMEPRAZOLE [Concomitant]
     Indication: DYSPEPSIA
     Route: 048
     Dates: end: 20120421
  7. SALBUTAMOL INHALER [Concomitant]
     Indication: ASTHMA
     Route: 045
     Dates: end: 20120421

REACTIONS (4)
  - Cardiac arrest [Fatal]
  - Cardiac arrest [Recovered/Resolved]
  - Brain injury [Not Recovered/Not Resolved]
  - Bronchopneumonia [Not Recovered/Not Resolved]
